FAERS Safety Report 10216074 (Version 1)
Quarter: 2014Q2

REPORT INFORMATION
  Report Type: Spontaneous
  Country: US (occurrence: None)
  Receive Date: 20140602
  Receipt Date: 20140602
  Transmission Date: 20141212
  Serious: Yes (Hospitalization)
  Sender: FDA-Public Use
  Company Number: HA14-198-AE

PATIENT
  Age: 34 Year
  Sex: Female
  Weight: 48.54 kg

DRUGS (21)
  1. GABAPENTIN [Suspect]
     Indication: FIBROMYALGIA
     Dosage: AT NIGHT
     Route: 048
  2. GABAPENTIN [Suspect]
     Indication: BIPOLAR DISORDER
     Dosage: AT NIGHT
     Route: 048
  3. GABAPENTIN [Suspect]
     Indication: ASTHMA
     Dosage: AT NIGHT
     Route: 048
  4. GABAPENTIN [Suspect]
     Indication: VOCAL CORD DISORDER
     Dosage: AT NIGHT
     Route: 048
  5. ASPIRIN [Concomitant]
  6. NEURONTIN [Concomitant]
  7. WELLBUTRIN [Concomitant]
  8. B-12 [Concomitant]
  9. FOLIC ACID [Concomitant]
  10. VITRON C [Concomitant]
  11. MAGNESIUM OXIDE [Concomitant]
  12. POTASSIUM [Concomitant]
  13. AMITIZA [Concomitant]
  14. LINZESS [Concomitant]
  15. REGLAN [Concomitant]
  16. GLUCAGON [Concomitant]
  17. DEXTROSE [Concomitant]
  18. ZOFRAN [Concomitant]
  19. ERYTHROMYCIN [Concomitant]
  20. COUMADIN [Concomitant]
  21. LOVENOX [Concomitant]

REACTIONS (19)
  - Alopecia [None]
  - Impaired gastric emptying [None]
  - Abdominal pain [None]
  - Frequent bowel movements [None]
  - Irritable bowel syndrome [None]
  - Hypoglycaemia [None]
  - Loss of consciousness [None]
  - Dizziness [None]
  - Vomiting [None]
  - Pancreatitis [None]
  - Decreased appetite [None]
  - Fatigue [None]
  - Hyperhidrosis [None]
  - Headache [None]
  - Pain in extremity [None]
  - Blood disorder [None]
  - Coagulopathy [None]
  - Muscle spasms [None]
  - Depression [None]
